FAERS Safety Report 12491391 (Version 2)
Quarter: 2016Q3

REPORT INFORMATION
  Report Type: Spontaneous
  Country: BR (occurrence: BR)
  Receive Date: 20160623
  Receipt Date: 20160711
  Transmission Date: 20161109
  Serious: Yes (Hospitalization, Other)
  Sender: FDA-Public Use
  Company Number: BR-009507513-1606BRA010096

PATIENT
  Age: 24 Year
  Sex: Female

DRUGS (1)
  1. MICRODIOL [Suspect]
     Active Substance: DESOGESTREL\ETHINYL ESTRADIOL
     Indication: CONTRACEPTION
     Dosage: 1 TABLET, QPM
     Route: 048
     Dates: start: 2010

REACTIONS (2)
  - Maternal exposure before pregnancy [Recovered/Resolved]
  - Foetal death [Recovered/Resolved]

NARRATIVE: CASE EVENT DATE: 201111
